FAERS Safety Report 5691012-9 (Version None)
Quarter: 2008Q2

REPORT INFORMATION
  Report Type: 
  Country: None (occurrence: None)
  Receive Date: 20080401
  Receipt Date: 20080327
  Transmission Date: 20081010
  Serious: Yes (Other)
  Sender: FDA-Public Use
  Company Number: US-PFIZER INC-2007003161

PATIENT
  Sex: Male
  Weight: 113.4 kg

DRUGS (14)
  1. LYRICA [Suspect]
     Indication: BACK PAIN
     Route: 048
     Dates: start: 20061222, end: 20070103
  2. LYRICA [Suspect]
     Indication: NEUROPATHY PERIPHERAL
  3. LYRICA [Suspect]
     Indication: HYPOAESTHESIA
  4. LYRICA [Suspect]
     Indication: LUMBAR RADICULOPATHY
  5. VICODIN [Suspect]
     Indication: BACK PAIN
     Dosage: FREQ:1-2 TABLETS EVERY 6-8 HOURS AS NEEDED
  6. VICODIN [Suspect]
     Indication: LUMBAR RADICULOPATHY
  7. VICODIN [Suspect]
     Indication: PAIN
  8. LIPITOR [Concomitant]
  9. PRINIVIL [Concomitant]
  10. MAXZIDE [Concomitant]
  11. ACETYLSALICYLIC ACID SRT [Concomitant]
  12. CLARITIN [Concomitant]
  13. ANTIHYPERTENSIVES [Concomitant]
  14. RELAFEN [Concomitant]

REACTIONS (12)
  - AGITATION [None]
  - AMNESIA [None]
  - CONFUSIONAL STATE [None]
  - DISORIENTATION [None]
  - DIZZINESS [None]
  - HEADACHE [None]
  - HYPOAESTHESIA [None]
  - INCOHERENT [None]
  - MUSCLE TWITCHING [None]
  - STRESS [None]
  - THINKING ABNORMAL [None]
  - WEIGHT DECREASED [None]
